FAERS Safety Report 5584725-0 (Version None)
Quarter: 2008Q1

REPORT INFORMATION
  Report Type: 
  Country: None (occurrence: None)
  Receive Date: 20080103
  Receipt Date: 20071219
  Transmission Date: 20080703
  Serious: Yes (Death)
  Sender: FDA-Public Use
  Company Number: 2006-03280

PATIENT
  Age: 64 Year
  Sex: Female
  Weight: 59 kg

DRUGS (19)
  1. VELCADE [Suspect]
     Indication: MULTIPLE MYELOMA
     Dosage: 1.80 MG, INTRAVENOUS
     Route: 042
     Dates: start: 20061209, end: 20061219
  2. DEXAMETHASONE TAB [Concomitant]
  3. ADONA (CARBAZOCHROME SODIUM SULFONATE) [Concomitant]
  4. TRANSAMIN (TRANSEXAMIC ACID) [Concomitant]
  5. SOLU-MEDROL [Concomitant]
  6. DOPAMINE HYDROCHLORIDE [Concomitant]
  7. MEROPEN (MEROPENEM) [Concomitant]
  8. FAMOTIDINE [Concomitant]
  9. CLARITHROMYCIN [Concomitant]
  10. ALLOPURINOL [Concomitant]
  11. SELBEX (TEPRENONE) [Concomitant]
  12. SUCRALFATE [Concomitant]
  13. LOSARTAN POTASSIUM [Concomitant]
  14. MAG-LAX (MAGNESIUM HYDROXIDE, PARAFFIN, LIQUID) [Concomitant]
  15. CALONAL (PARACETAMOL) [Concomitant]
  16. RED BLOOD CELLS [Concomitant]
  17. PLATELETS [Concomitant]
  18. LASIX [Concomitant]
  19. GRAN [Concomitant]

REACTIONS (25)
  - ANAEMIA [None]
  - ANAESTHESIA [None]
  - ANAL EROSION [None]
  - ARTERIAL THROMBOSIS LIMB [None]
  - ASPARTATE AMINOTRANSFERASE INCREASED [None]
  - BACK PAIN [None]
  - BLOOD AMYLASE INCREASED [None]
  - BLOOD CALCIUM DECREASED [None]
  - BLOOD LACTATE DEHYDROGENASE INCREASED [None]
  - C-REACTIVE PROTEIN INCREASED [None]
  - DEEP VEIN THROMBOSIS [None]
  - ENTEROCOCCAL SEPSIS [None]
  - HAEMORRHAGE [None]
  - HEPATIC CONGESTION [None]
  - HYPOXIA [None]
  - LOSS OF CONSCIOUSNESS [None]
  - MALAISE [None]
  - MOUTH BREATHING [None]
  - MUSCULOSKELETAL PAIN [None]
  - PAIN IN EXTREMITY [None]
  - PARALYSIS [None]
  - PROCTALGIA [None]
  - SEPTIC SHOCK [None]
  - SHOCK [None]
  - VOLUME BLOOD DECREASED [None]
